FAERS Safety Report 23754486 (Version 1)
Quarter: 2024Q2

REPORT INFORMATION
  Report Type: Spontaneous
  Country: US (occurrence: US)
  Receive Date: 20240418
  Receipt Date: 20240418
  Transmission Date: 20240716
  Serious: No
  Sender: FDA-Public Use
  Company Number: US-AMGEN-USASP2024075732

PATIENT
  Age: 64 Year
  Sex: Female

DRUGS (2)
  1. REPATHA [Suspect]
     Active Substance: EVOLOCUMAB
     Indication: Glucose tolerance impaired
     Dosage: 420 MILLIGRAM, QMO
     Route: 058
     Dates: start: 202308
  2. RYBELSUS [Concomitant]
     Active Substance: SEMAGLUTIDE
     Indication: Glucose tolerance impaired
     Dosage: UNK

REACTIONS (3)
  - Device difficult to use [Unknown]
  - Drug dose omission by device [Unknown]
  - Off label use [Unknown]

NARRATIVE: CASE EVENT DATE: 20230801
